FAERS Safety Report 5525412-4 (Version None)
Quarter: 2007Q4

REPORT INFORMATION
  Report Type: 
  Country: None (occurrence: None)
  Receive Date: 20071120
  Receipt Date: 20070323
  Transmission Date: 20080405
  Serious: Yes (Other)
  Sender: FDA-Public Use
  Company Number: 2007025445

PATIENT
  Sex: Male
  Weight: 90.7194 kg

DRUGS (3)
  1. TIKOSYN [Suspect]
     Indication: ATRIAL FIBRILLATION
     Dates: start: 20070301
  2. LISINOPRIL [Concomitant]
  3. COUMADIN [Concomitant]

REACTIONS (1)
  - RASH [None]
